FAERS Safety Report 16305818 (Version 1)
Quarter: 2019Q2

REPORT INFORMATION
  Report Type: Spontaneous
  Country: US (occurrence: US)
  Receive Date: 20190507
  Receipt Date: 20190507
  Transmission Date: 20190711
  Serious: Yes (Death, Hospitalization)
  Sender: FDA-Public Use
  Company Number: None

PATIENT
  Age: 71 Year
  Sex: Female

DRUGS (5)
  1. SENSORCAINE [Suspect]
     Active Substance: BUPIVACAINE HYDROCHLORIDE
  2. KENALOG [Suspect]
     Active Substance: TRIAMCINOLONE ACETONIDE
  3. PERIFIX ANESTHESIA TRAYS [Suspect]
     Active Substance: DEVICE
  4. OMNIPAQUE [Suspect]
     Active Substance: IOHEXOL
  5. DEPO-MEDROL [Suspect]
     Active Substance: METHYLPREDNISOLONE ACETATE

REACTIONS (5)
  - Septic shock [None]
  - Cellulitis gangrenous [None]
  - Cardiac arrest [None]
  - Clostridial infection [None]
  - Suspected transmission of an infectious agent via product [None]

NARRATIVE: CASE EVENT DATE: 20190423
